FAERS Safety Report 5372006-X (Version None)
Quarter: 2007Q2

REPORT INFORMATION
  Report Type: 
  Country: None (occurrence: None)
  Receive Date: 20070627
  Receipt Date: 20070615
  Transmission Date: 20071010
  Serious: Yes (Hospitalization, Disabling, Other)
  Sender: FDA-Public Use
  Company Number: GB-ASTRAZENECA-2007GB01264

PATIENT
  Age: 56 Year
  Sex: Female
  Weight: 80 kg

DRUGS (2)
  1. TAMOXIFEN CITRATE [Suspect]
     Route: 048
     Dates: start: 20020920, end: 20070608
  2. SEROXAT [Concomitant]
     Route: 048
     Dates: start: 20060910

REACTIONS (1)
  - RETINAL DETACHMENT [None]
